FAERS Safety Report 5740572-8 (Version None)
Quarter: 2008Q2

REPORT INFORMATION
  Report Type: 
  Country: None (occurrence: None)
  Receive Date: 20080516
  Receipt Date: 20080508
  Transmission Date: 20081010
  Serious: Yes (Hospitalization, Other)
  Sender: FDA-Public Use
  Company Number: US-AMGEN-US240672

PATIENT
  Sex: Female

DRUGS (11)
  1. ENBREL [Suspect]
     Indication: RHEUMATOID ARTHRITIS
     Route: 058
     Dates: start: 20030301, end: 20040721
  2. AZATHIOPRINE SODIUM [Suspect]
     Route: 048
     Dates: end: 20040721
  3. PREDNISONE TAB [Suspect]
     Route: 048
     Dates: end: 20040721
  4. PREVACID [Concomitant]
     Route: 065
  5. LEVOTHYROXINE SODIUM [Concomitant]
     Route: 065
  6. NORVASC [Concomitant]
     Route: 065
  7. LORAZEPAM [Concomitant]
     Route: 065
  8. ACTONEL [Concomitant]
     Route: 065
  9. DARVOCET-N [Concomitant]
     Route: 065
  10. MULTIVIT [Concomitant]
     Route: 065
  11. MIRALAX [Concomitant]

REACTIONS (3)
  - BLADDER OPERATION [None]
  - INTESTINAL RESECTION [None]
  - WOUND ABSCESS [None]
